FAERS Safety Report 8059621 (Version 2)
Quarter: 2013Q1

REPORT INFORMATION
  Report Type: Spontaneous
  Country: US (occurrence: US)
  Receive Date: 20110728
  Receipt Date: 20130201
  Transmission Date: 20140127
  Serious: Yes (Other)
  Sender: FDA-Public Use
  Company Number: US-PFIZER INC-2011170095

PATIENT
  Age: 73 Year
  Sex: Female
  Weight: 56.69 kg

DRUGS (5)
  1. LIPITOR [Suspect]
     Indication: BLOOD CHOLESTEROL ABNORMAL
     Dosage: 20 MG, DAILY
     Route: 048
  2. LIPITOR [Suspect]
     Dosage: UNK
     Route: 048
  3. EFFIENT [Concomitant]
     Indication: ANTICOAGULANT THERAPY
     Dosage: 5 MG, DAILY
     Route: 048
  4. LEVOXYL [Concomitant]
     Indication: THYROID DISORDER
     Dosage: 75 UG, DAILY
     Route: 048
  5. ASPIRIN [Concomitant]
     Dosage: 162 MG (TWO TABLETS), 2X/DAY
     Route: 048

REACTIONS (1)
  - Diabetes mellitus [Unknown]
